FAERS Safety Report 6889058-8 (Version None)
Quarter: 2010Q3

REPORT INFORMATION
  Report Type: 
  Country: None (occurrence: None)
  Receive Date: 20100730
  Receipt Date: 20080222
  Transmission Date: 20110219
  Serious: No
  Sender: FDA-Public Use
  Company Number: US-PFIZER INC-2007105350

PATIENT
  Sex: Female
  Weight: 52.272 kg

DRUGS (3)
  1. LIPITOR [Suspect]
     Indication: BLOOD CHOLESTEROL INCREASED
     Dates: start: 20030101
  2. ATENOLOL [Concomitant]
     Indication: MYOCARDIAL INFARCTION
  3. SYNTHROID [Concomitant]
     Indication: HYPOTHYROIDISM

REACTIONS (2)
  - ALOPECIA [None]
  - HIGH DENSITY LIPOPROTEIN ABNORMAL [None]
